FAERS Safety Report 14890396 (Version 4)
Quarter: 2018Q2

REPORT INFORMATION
  Report Type: Spontaneous
  Country: US (occurrence: US)
  Receive Date: 20180514
  Receipt Date: 20180625
  Transmission Date: 20180711
  Serious: Yes (Other)
  Sender: FDA-Public Use
  Company Number: US-PFIZER INC-2018195222

PATIENT
  Age: 71 Year
  Sex: Female
  Weight: 69 kg

DRUGS (2)
  1. IBRANCE [Suspect]
     Active Substance: PALBOCICLIB
     Indication: BREAST CANCER METASTATIC
     Dosage: 100 MG, CYCLIC (1 DAILY FOR 21 DAYS, THEN 7 DAYS OFF)
     Route: 048
     Dates: start: 20180424, end: 20180426
  2. IBRANCE [Suspect]
     Active Substance: PALBOCICLIB
     Dosage: 100 MG, CYCLIC (1 DAILY FOR 21 DAYS, THEN 7 DAYS OFF)
     Route: 048
     Dates: start: 20180518, end: 20180618

REACTIONS (20)
  - White blood cell count decreased [Unknown]
  - Haematochezia [Unknown]
  - Pain in jaw [Not Recovered/Not Resolved]
  - Eye disorder [Unknown]
  - Neoplasm progression [Unknown]
  - Pain [Unknown]
  - Pruritus [Unknown]
  - Nausea [Unknown]
  - Muscle spasms [Unknown]
  - Hair disorder [Unknown]
  - Pain of skin [Unknown]
  - Epistaxis [Unknown]
  - Musculoskeletal pain [Unknown]
  - Back pain [Not Recovered/Not Resolved]
  - Dizziness [Unknown]
  - Dysuria [Unknown]
  - Trismus [Unknown]
  - Blood pressure increased [Unknown]
  - Diarrhoea [Unknown]
  - Asthenia [Unknown]

NARRATIVE: CASE EVENT DATE: 2018
